FAERS Safety Report 4390562-5 (Version None)
Quarter: 2004Q2

REPORT INFORMATION
  Report Type: 
  Country: None (occurrence: None)
  Receive Date: 20040630
  Receipt Date: 20040615
  Transmission Date: 20050107
  Serious: Yes (Hospitalization)
  Sender: FDA-Public Use
  Company Number: 2004-0007164

PATIENT
  Age: 43 Year
  Sex: Male

DRUGS (7)
  1. TENOFOVIR DISOPROXIL FUMARATE / EMTRICITABINE [Suspect]
     Indication: HIV INFECTION
     Dosage: 300 MG, 1 IN 1 D, ORAL
     Route: 048
     Dates: start: 20040202
  2. SUSTIVA [Suspect]
     Indication: HIV INFECTION
     Dates: start: 20040202
  3. EPIVIR [Suspect]
     Indication: HIV INFECTION
     Dates: start: 20040202
  4. AZITHROMYCIN [Concomitant]
  5. ETHAMBUTOL HCL [Concomitant]
  6. RIFABUTIN (RIFABUTIN) [Concomitant]
  7. BUPROPION HCL [Concomitant]

REACTIONS (3)
  - HYPERCALCAEMIA [None]
  - NAUSEA [None]
  - RENAL FAILURE ACUTE [None]
